FAERS Safety Report 17558822 (Version 1)
Quarter: 2020Q1

REPORT INFORMATION
  Report Type: Spontaneous
  Country: GB (occurrence: GB)
  Receive Date: 20200318
  Receipt Date: 20200318
  Transmission Date: 20200409
  Serious: Yes (Other)
  Sender: FDA-Public Use
  Company Number: GB-BAXTER-2020BAX005434

PATIENT
  Age: 4 Year
  Sex: Male

DRUGS (1)
  1. FUROSEMIDE 10MG/ML SOLUTION FOR INJECTION [Suspect]
     Active Substance: FUROSEMIDE
     Indication: PRODUCT USED FOR UNKNOWN INDICATION
     Dosage: 20MG IN 2ML
     Route: 065

REACTIONS (3)
  - Pallor [Recovering/Resolving]
  - Incorrect dose administered [Unknown]
  - Abdominal pain upper [Recovered/Resolved]
